FAERS Safety Report 4725746-7 (Version None)
Quarter: 2005Q3

REPORT INFORMATION
  Report Type: 
  Country: None (occurrence: None)
  Receive Date: 20050725
  Receipt Date: 20050712
  Transmission Date: 20060218
  Serious: Yes (Other)
  Sender: FDA-Public Use
  Company Number: 2005100601

PATIENT
  Sex: Female
  Weight: 65.7716 kg

DRUGS (13)
  1. NORVASC [Suspect]
     Indication: BLOOD PRESSURE
     Dosage: 5 MG (5 MG, DAILY)
  2. CELEBREX [Concomitant]
  3. CENTRUM (MINERALS NOS, VITAMINS NOS) [Concomitant]
  4. CALTRATE (CALCIUM CARBONATE) [Concomitant]
  5. ALL OTHER THERAPEUTIC PRODUCTS (ALL OTHER THERAPEUTIC PRODUCTS) [Concomitant]
  6. COZAAR [Concomitant]
  7. MIACALCIN [Concomitant]
  8. SYNTHROID [Concomitant]
  9. VALIUM [Concomitant]
  10. WELLBURTIN (BUPROPION HYDROCHLORIDE) [Concomitant]
  11. ATIVAN [Concomitant]
  12. SEROQUEL [Concomitant]
  13. ZOLOFT [Concomitant]

REACTIONS (4)
  - BODY HEIGHT DECREASED [None]
  - DYSURIA [None]
  - EYE DISORDER [None]
  - TREATMENT NONCOMPLIANCE [None]
